FAERS Safety Report 21224017 (Version 1)
Quarter: 2022Q3

REPORT INFORMATION
  Report Type: Spontaneous
  Country: US (occurrence: US)
  Receive Date: 20220817
  Receipt Date: 20220817
  Transmission Date: 20221027
  Serious: No
  Sender: FDA-Public Use
  Company Number: US-SA-2021MK000094

PATIENT
  Sex: Female

DRUGS (6)
  1. AFREZZA [Suspect]
     Active Substance: INSULIN HUMAN
     Indication: Diabetes mellitus
     Dates: start: 20210305
  2. AFREZZA [Suspect]
     Active Substance: INSULIN HUMAN
     Dates: start: 20210305
  3. TOUJEO [Concomitant]
     Active Substance: INSULIN GLARGINE
     Indication: Diabetes mellitus
  4. METFORMIN [Concomitant]
     Active Substance: METFORMIN HYDROCHLORIDE
     Indication: Product used for unknown indication
  5. RYBELSUS [Concomitant]
     Active Substance: SEMAGLUTIDE
     Indication: Product used for unknown indication
  6. NOVOLOG [Concomitant]
     Active Substance: INSULIN ASPART
     Indication: Diabetes mellitus

REACTIONS (2)
  - Constipation [Recovered/Resolved]
  - Weight increased [Recovered/Resolved]
